FAERS Safety Report 23219654 (Version 4)
Quarter: 2024Q4

REPORT INFORMATION
  Report Type: Spontaneous
  Country: US (occurrence: US)
  Receive Date: 20231122
  Receipt Date: 20241125
  Transmission Date: 20250115
  Serious: No
  Sender: AVADEL CNS PHARMACEUTICALS, LLC
  Company Number: US-AVADEL CNS PHARMACEUTICALS, LLC-2023AVA00249

PATIENT
  Sex: Female
  Weight: 52.154 kg

DRUGS (15)
  1. LUMRYZ [Suspect]
     Active Substance: SODIUM OXYBATE
     Indication: Narcolepsy
     Dosage: 4.5 G, ONCE NIGHTLY
     Route: 048
     Dates: start: 20230928, end: 20231004
  2. LUMRYZ [Suspect]
     Active Substance: SODIUM OXYBATE
     Indication: Somnolence
     Dosage: 4.5 G, DOSE WAS LOWERED TO 4.5 GRAMS
     Route: 048
     Dates: start: 202312, end: 2024
  3. LUMRYZ [Suspect]
     Active Substance: SODIUM OXYBATE
     Indication: Cataplexy
  4. LUMRYZ [Suspect]
     Active Substance: SODIUM OXYBATE
     Indication: Narcolepsy
     Dosage: 6 G, ONCE NIGHTLY
     Route: 048
     Dates: start: 20231005, end: 20231015
  5. LUMRYZ [Suspect]
     Active Substance: SODIUM OXYBATE
     Indication: Somnolence
     Dosage: 6 G, DOSE WAS LOWERED TO 6 GRAMS
     Route: 048
     Dates: start: 20231016, end: 202312
  6. LUMRYZ [Suspect]
     Active Substance: SODIUM OXYBATE
     Indication: Cataplexy
     Dosage: 6 G, EVERY NOW AND THEN TO GET THAT EXTRA BOOST
     Route: 048
     Dates: end: 2024
  7. LUMRYZ [Suspect]
     Active Substance: SODIUM OXYBATE
     Indication: Narcolepsy
     Dosage: 7.5 G, ONCE NIGHTLY
     Route: 048
     Dates: start: 20231016, end: 20231016
  8. LUMRYZ [Suspect]
     Active Substance: SODIUM OXYBATE
     Indication: Somnolence
  9. LUMRYZ [Suspect]
     Active Substance: SODIUM OXYBATE
     Indication: Cataplexy
  10. LEXAPRO [Concomitant]
     Active Substance: ESCITALOPRAM OXALATE
     Dosage: 10 MG, ONCE NIGHTLY
  11. LEXAPRO [Concomitant]
     Active Substance: ESCITALOPRAM OXALATE
     Dosage: 15 MG, ONCE DAILY
     Dates: start: 2024
  12. TRI-SPRINTEC [Concomitant]
     Active Substance: ETHINYL ESTRADIOL\NORGESTIMATE
     Dosage: UNK, ONCE NIGHTLY
  13. SPRINTEC [Concomitant]
     Active Substance: ETHINYL ESTRADIOL\NORGESTIMATE
  14. ALCOHOL [Concomitant]
     Active Substance: ALCOHOL
  15. DIETARY SUPPLEMENT [Concomitant]
     Active Substance: DIETARY SUPPLEMENT
     Dosage: UNK

REACTIONS (13)
  - Middle insomnia [Not Recovered/Not Resolved]
  - Pollakiuria [Not Recovered/Not Resolved]
  - Constipation [Not Recovered/Not Resolved]
  - Fatigue [Unknown]
  - Illness [Recovered/Resolved]
  - Dizziness [Recovering/Resolving]
  - Nausea [Recovering/Resolving]
  - Enuresis [Recovered/Resolved]
  - Abdominal pain upper [Not Recovered/Not Resolved]
  - Vomiting [Recovering/Resolving]
  - Product dose omission issue [Unknown]
  - Intentional dose omission [Unknown]
  - Intentional product use issue [Not Recovered/Not Resolved]

NARRATIVE: CASE EVENT DATE: 20230101
